FAERS Safety Report 15345077 (Version 1)
Quarter: 2018Q3

REPORT INFORMATION
  Report Type: Spontaneous
  Country: DE (occurrence: DE)
  Receive Date: 20180903
  Receipt Date: 20180903
  Transmission Date: 20181010
  Serious: Yes (Other)
  Sender: FDA-Public Use
  Company Number: PHHY2018DE084590

PATIENT
  Sex: Female

DRUGS (1)
  1. ASPIRIN. [Suspect]
     Active Substance: ASPIRIN
     Indication: PROPHYLAXIS
     Dosage: 100 MG, QD (ASS FOR PROPHYLAXIS ? BECAUSE OF PLACENTAL INSUFFICIENCY IN FIRST PREGNANCY)
     Route: 064

REACTIONS (2)
  - Congenital choroid plexus cyst [Unknown]
  - Intraventricular haemorrhage neonatal [Recovered/Resolved]
